FAERS Safety Report 7273168-X (Version None)
Quarter: 2011Q1

REPORT INFORMATION
  Report Type: 
  Country: None (occurrence: None)
  Receive Date: 20110203
  Receipt Date: 20101129
  Transmission Date: 20110831
  Serious: No
  Sender: FDA-Public Use
  Company Number: US-ABBOTT-10P-163-0688906-00

PATIENT
  Sex: Female
  Weight: 56.75 kg

DRUGS (2)
  1. SYNTHROID [Suspect]
     Dosage: 50 MCG DAILY DOSE
  2. SYNTHROID [Suspect]
     Indication: PRODUCT USED FOR UNKNOWN INDICATION
     Dosage: 25 MCG DAILY DOSE

REACTIONS (7)
  - WEIGHT DECREASED [None]
  - THYROID FUNCTION TEST ABNORMAL [None]
  - HYPERHIDROSIS [None]
  - INSOMNIA [None]
  - ALOPECIA [None]
  - THROAT IRRITATION [None]
  - DRY SKIN [None]
